FAERS Safety Report 26050752 (Version 3)
Quarter: 2025Q4

REPORT INFORMATION
  Report Type: Spontaneous
  Country: US (occurrence: US)
  Receive Date: 20251116
  Receipt Date: 20251230
  Transmission Date: 20260117
  Serious: Yes (Hospitalization)
  Sender: BIOGEN
  Company Number: US-BIOGEN-2090312

PATIENT
  Age: 61 Year
  Sex: Male

DRUGS (18)
  1. TYSABRI [Suspect]
     Active Substance: NATALIZUMAB
     Indication: Multiple sclerosis
  2. TYSABRI [Suspect]
     Active Substance: NATALIZUMAB
     Dates: start: 20080908, end: 20250128
  3. TYSABRI [Suspect]
     Active Substance: NATALIZUMAB
  4. PROPECIA [Concomitant]
     Active Substance: FINASTERIDE
     Indication: Product used for unknown indication
  5. LIPITOR [Concomitant]
     Active Substance: ATORVASTATIN CALCIUM
     Indication: Blood cholesterol increased
     Dates: start: 20250422
  6. WELLBUTRIN [Concomitant]
     Active Substance: BUPROPION HYDROCHLORIDE
     Indication: Depression
     Dosage: 1(300MG) + 150MG TABLET TOTAL OF 450 MG
     Dates: start: 20250828
  7. KLONOPIN [Concomitant]
     Active Substance: CLONAZEPAM
     Indication: Anxiety
     Dosage: 1-2MG TID AS NEEDED
     Dates: start: 20250828
  8. EPINEPHRINE [Concomitant]
     Active Substance: EPINEPHRINE
     Indication: Anaphylactic reaction
     Dosage: ONCE AS NEEDED
  9. LUNESTA [Concomitant]
     Active Substance: ESZOPICLONE
     Indication: Insomnia
     Dosage: AS NEEDED
     Dates: start: 20251031
  10. LEVOTHYROXINE [Concomitant]
     Active Substance: LEVOTHYROXINE
     Indication: Hypothyroidism
     Dates: start: 20250903
  11. ZESTORETIC [Concomitant]
     Active Substance: HYDROCHLOROTHIAZIDE\LISINOPRIL
     Indication: Hypertension
     Dosage: 2 TABLETS (20-12.5MG)
     Dates: start: 20250310
  12. RITALIN [Concomitant]
     Active Substance: METHYLPHENIDATE HYDROCHLORIDE
     Indication: Attention deficit hyperactivity disorder
     Dosage: 40MG IN MORNING; 30MG IN NOON; 30MG IN EVENING
     Dates: start: 20251203
  13. ZOFRAN ODT [Concomitant]
     Active Substance: ONDANSETRON HYDROCHLORIDE
     Indication: Product used for unknown indication
     Dosage: AS NEEDED
     Dates: start: 20251118
  14. FLOMAX [Concomitant]
     Active Substance: TAMSULOSIN HYDROCHLORIDE
     Indication: Product used for unknown indication
     Dates: start: 20251025
  15. DEPO-TESTOSTERONE [Concomitant]
     Active Substance: TESTOSTERONE CYPIONATE
     Indication: Product used for unknown indication
     Dates: start: 20250916
  16. VALTREX [Concomitant]
     Active Substance: VALACYCLOVIR HYDROCHLORIDE
     Indication: Product used for unknown indication
     Dates: start: 20250310
  17. TRINTELLIX [Concomitant]
     Active Substance: VORTIOXETINE HYDROBROMIDE
     Indication: Major depression
     Dates: start: 20240125
  18. FLONASE [Concomitant]
     Active Substance: FLUTICASONE PROPIONATE
     Indication: Product used for unknown indication
     Dosage: INSTILL 2 SPRAYS INTO EACH NOSTRIL ONCE DAILY (PATIENT TAKING DIFFERENTLY: 2 SPRAYS IF NEEDED)

REACTIONS (4)
  - Penis disorder [Not Recovered/Not Resolved]
  - Prescribed underdose [Not Recovered/Not Resolved]
  - Multiple sclerosis relapse [Not Recovered/Not Resolved]
  - Post procedural complication [Not Recovered/Not Resolved]

NARRATIVE: CASE EVENT DATE: 20251026
